FAERS Safety Report 5941626-3 (Version None)
Quarter: 2008Q4

REPORT INFORMATION
  Report Type: 
  Country: None (occurrence: None)
  Receive Date: 20081104
  Receipt Date: 20081104
  Transmission Date: 20090506
  Serious: Yes (Hospitalization)
  Sender: FDA-Public Use
  Company Number: None

PATIENT
  Sex: Female
  Weight: 46.7205 kg

DRUGS (1)
  1. BACTRIM DS OR GENERIC UNKNOWN [Suspect]
     Indication: DIARRHOEA
     Dosage: 1 TAB BID PO
     Route: 048
     Dates: start: 20070205, end: 20070206

REACTIONS (3)
  - ANGIOEDEMA [None]
  - DYSPHAGIA [None]
  - SPEECH DISORDER [None]
